FAERS Safety Report 5979464-8 (Version None)
Quarter: 2008Q4

REPORT INFORMATION
  Report Type: 
  Country: None (occurrence: None)
  Receive Date: 20081204
  Receipt Date: 20081121
  Transmission Date: 20090506
  Serious: Yes (Life-Threatening)
  Sender: FDA-Public Use
  Company Number: FR-ELI_LILLY_AND_COMPANY-FR200811004994

PATIENT
  Age: 47 Year
  Sex: Male

DRUGS (4)
  1. ZYPREXA [Suspect]
     Indication: MANIA
     Dosage: 20 MG, UNK
     Route: 048
     Dates: start: 20081002
  2. RIVOTRIL [Concomitant]
     Indication: MANIA
     Dosage: 3 MG, UNK
     Route: 048
     Dates: start: 20081002
  3. CLOPIXOL [Concomitant]
     Indication: MANIA
     Dosage: 50 MG, UNK
     Route: 030
     Dates: start: 20081002
  4. TERCIAN [Concomitant]
     Indication: MANIA
     Dosage: 50 MG, 2/D
     Route: 030
     Dates: start: 20081002

REACTIONS (4)
  - BRONCHIAL OBSTRUCTION [None]
  - ELECTROCARDIOGRAM QT PROLONGED [None]
  - RESPIRATORY ARREST [None]
  - SEDATION [None]
